APPROVED DRUG PRODUCT: DACTINOMYCIN
Active Ingredient: DACTINOMYCIN
Strength: 0.5MG/VIAL
Dosage Form/Route: INJECTABLE;INJECTION
Application: A203385 | Product #001 | TE Code: AP
Applicant: EUGIA PHARMA SPECIALITIES LTD
Approved: Nov 9, 2017 | RLD: No | RS: Yes | Type: RX